FAERS Safety Report 8454669-5 (Version None)
Quarter: 2012Q2

REPORT INFORMATION
  Report Type: 
  Country: None (occurrence: None)
  Receive Date: 20120615
  Receipt Date: 20120615
  Transmission Date: 20120825
  Serious: Yes (Death)
  Sender: FDA-Public Use
  Company Number: None

PATIENT
  Sex: Female
  Weight: 52.2544 kg

DRUGS (2)
  1. CLOZAPINE [Suspect]
     Indication: BIPOLAR DISORDER
     Dosage: 300MG Q HS PO
     Route: 048
     Dates: start: 20110401, end: 20110511
  2. CLOZAPINE [Suspect]
     Indication: SCHIZOAFFECTIVE DISORDER
     Dosage: 300MG Q HS PO
     Route: 048
     Dates: start: 20110401, end: 20110511

REACTIONS (11)
  - HAEMATOCHEZIA [None]
  - HYPOXIC-ISCHAEMIC ENCEPHALOPATHY [None]
  - ASPHYXIA [None]
  - INTESTINAL ISCHAEMIA [None]
  - DISSEMINATED INTRAVASCULAR COAGULATION [None]
  - CHOKING [None]
  - ACCIDENTAL DEATH [None]
  - LIVER DISORDER [None]
  - SEDATION [None]
  - RENAL DISORDER [None]
  - CARDIO-RESPIRATORY ARREST [None]
